FAERS Safety Report 8806026 (Version 2)
Quarter: 2013Q3

REPORT INFORMATION
  Report Type: Spontaneous
  Country: US (occurrence: US)
  Receive Date: 20120925
  Receipt Date: 20130801
  Transmission Date: 20140515
  Serious: Yes (Hospitalization)
  Sender: FDA-Public Use
  Company Number: US-BAYER-2012-097196

PATIENT
  Age: 42 Year
  Sex: Female

DRUGS (7)
  1. YAZ [Suspect]
     Indication: ACNE
     Dosage: UNK
     Dates: start: 2007, end: 2009
  2. YAZ [Suspect]
     Indication: CONTRACEPTION
  3. MULTIVITAMIN [Concomitant]
  4. FOLIC ACID [Concomitant]
  5. VITAMIN B12 [Concomitant]
  6. FISH OIL [Concomitant]
  7. MORPHINE [Concomitant]
     Indication: PAIN

REACTIONS (3)
  - Myocardial infarction [Recovering/Resolving]
  - Pain [Recovering/Resolving]
  - Pain [None]
